FAERS Safety Report 8107767-X (Version None)
Quarter: 2012Q1

REPORT INFORMATION
  Report Type: 
  Country: None (occurrence: None)
  Receive Date: 20120202
  Receipt Date: 20120126
  Transmission Date: 20120608
  Serious: Yes (Other)
  Sender: FDA-Public Use
  Company Number: US-JNJFOC-20120112924

PATIENT
  Age: 68 Year
  Sex: Female
  Weight: 61.69 kg

DRUGS (7)
  1. INVEGA SUSTENNA [Suspect]
     Indication: BIPOLAR DISORDER
     Route: 030
     Dates: start: 20120124, end: 20120124
  2. ALBUTEROL [Concomitant]
     Indication: ASTHMA
     Route: 055
  3. SYNTHROID [Concomitant]
     Indication: THYROID DISORDER
     Route: 048
  4. ATENOLOL [Concomitant]
     Indication: HYPERTENSION
     Route: 048
  5. MAGNESIUM [Concomitant]
     Indication: OSTEOPOROSIS
     Route: 048
  6. MULTIPLE VITAMIN [Concomitant]
     Indication: MEDICAL DIET
     Route: 048
  7. VITAMIN B COMPLEX CAP [Concomitant]
     Indication: MEDICAL DIET
     Route: 048

REACTIONS (11)
  - RESTLESS LEGS SYNDROME [None]
  - INSOMNIA [None]
  - DIARRHOEA [None]
  - INJECTION SITE PAIN [None]
  - DIZZINESS [None]
  - MEMORY IMPAIRMENT [None]
  - VISION BLURRED [None]
  - LACERATION [None]
  - CARDIAC FLUTTER [None]
  - AGITATION [None]
  - DYSPEPSIA [None]
